FAERS Safety Report 11857042 (Version 1)
Quarter: 2015Q4

REPORT INFORMATION
  Report Type: Spontaneous
  Country: DE (occurrence: DE)
  Receive Date: 20151221
  Receipt Date: 20151221
  Transmission Date: 20160305
  Serious: Yes (Death)
  Sender: FDA-Public Use
  Company Number: DE-TEVA-618438GER

PATIENT
  Age: 39 Year
  Sex: Male

DRUGS (4)
  1. AMISULPRID 200 MG [Concomitant]
     Dosage: 1X IN THE MORNING
  2. BISOHEXAL 5 MG [Concomitant]
     Indication: HYPERTENSION
     Dosage: IN THE MORNING
  3. ARIPIPRAZOL [Suspect]
     Active Substance: ARIPIPRAZOLE
     Dosage: 1X IN THE EVENING 5 OR 10MG,THEN IN THE MORNING 10MG AND IN THE EVENING 5MG
     Dates: start: 20150502
  4. RAMIPRIL 2.5 [Concomitant]
     Indication: HYPERTENSION
     Dosage: IN THE MORNING

REACTIONS (10)
  - Completed suicide [Fatal]
  - Sweat gland disorder [Fatal]
  - Apathy [Fatal]
  - Breast pain [Fatal]
  - Asthenia [Fatal]
  - Lip disorder [Fatal]
  - Retching [Fatal]
  - Decreased appetite [Fatal]
  - Depression [Fatal]
  - Sleep disorder [Fatal]

NARRATIVE: CASE EVENT DATE: 20150913
